FAERS Safety Report 4457854-2 (Version None)
Quarter: 2004Q3

REPORT INFORMATION
  Report Type: 
  Country: None (occurrence: None)
  Receive Date: 20040924
  Receipt Date: 20040914
  Transmission Date: 20050211
  Serious: Yes (Death, Life-Threatening, Hospitalization)
  Sender: FDA-Public Use
  Company Number: GB-JNJFOC-20040904281

PATIENT
  Sex: Female

DRUGS (8)
  1. REMICADE [Suspect]
     Indication: RHEUMATOID ARTHRITIS
     Route: 042
  2. METHOTREXATE [Concomitant]
     Route: 065
  3. CO-AMILOFRUSE [Concomitant]
     Route: 065
  4. CO-AMILOFRUSE [Concomitant]
     Route: 065
  5. CALCIUM [Concomitant]
     Route: 065
  6. ROFECOXIB [Concomitant]
     Route: 065
  7. RANITIDINE [Concomitant]
     Route: 065
  8. LOSARTAN POTASSIUM [Concomitant]
     Route: 065

REACTIONS (2)
  - METASTATIC NEOPLASM [None]
  - PANCREATIC CARCINOMA [None]
